FAERS Safety Report 19468610 (Version 1)
Quarter: 2021Q2

REPORT INFORMATION
  Report Type: Spontaneous
  Country: CH (occurrence: CH)
  Receive Date: 20210628
  Receipt Date: 20210628
  Transmission Date: 20210717
  Serious: Yes (Other)
  Sender: FDA-Public Use
  Company Number: CH-TEVA-2021-CH-1925752

PATIENT
  Age: 76 Year
  Sex: Male
  Weight: 74 kg

DRUGS (7)
  1. TAMSULOSINE [Suspect]
     Active Substance: TAMSULOSIN HYDROCHLORIDE
     Indication: BENIGN PROSTATIC HYPERPLASIA
     Dosage: 0.4 MG
     Route: 048
     Dates: end: 20210427
  2. MOTILIUM [Concomitant]
     Active Substance: DOMPERIDONE
     Dosage: AS NECESSARY , UNIT DOSE : 10 MG
     Route: 048
  3. PANTOZOL [Concomitant]
     Active Substance: PANTOPRAZOLE SODIUM
     Dosage: 40 MG
     Route: 048
  4. FLATULEX [Concomitant]
     Active Substance: ACTIVATED CHARCOAL\DIMETHICONE
     Dosage: AS NECESSARY , UNIT DOSE : 42 MG
     Route: 048
  5. VENTOLIN [Concomitant]
     Active Substance: ALBUTEROL SULFATE
     Dosage: AS NECESSARY, UNIT DOSE : 100 MCG
     Route: 055
  6. RELVAR ELLIPTA [Concomitant]
     Active Substance: FLUTICASONE FUROATE\VILANTEROL TRIFENATATE
     Dosage: AS NECESSARY
     Route: 055
  7. COVID?19 VACCINE [Concomitant]
     Dosage: 2ND DOSE ,  UNIT DOSE : 1 DF
     Route: 030
     Dates: start: 20210407, end: 20210407

REACTIONS (4)
  - Syncope [Recovered/Resolved]
  - Atrial fibrillation [Recovered/Resolved]
  - Syncope [Recovered/Resolved]
  - Palpitations [Recovered/Resolved]

NARRATIVE: CASE EVENT DATE: 20210427
